FAERS Safety Report 6254275-7 (Version None)
Quarter: 2009Q2

REPORT INFORMATION
  Report Type: 
  Country: None (occurrence: None)
  Receive Date: 20090630
  Receipt Date: 20090630
  Transmission Date: 20091009
  Serious: No
  Sender: FDA-Public Use
  Company Number: None

PATIENT
  Age: 56 Year
  Sex: Female
  Weight: 63.5036 kg

DRUGS (1)
  1. TRAZODONE HCL [Suspect]

REACTIONS (12)
  - BALANCE DISORDER [None]
  - BURNING SENSATION [None]
  - DIZZINESS [None]
  - DRY MOUTH [None]
  - FATIGUE [None]
  - FEELING ABNORMAL [None]
  - HEADACHE [None]
  - IMPAIRED WORK ABILITY [None]
  - MUSCLE TIGHTNESS [None]
  - NAUSEA [None]
  - PARAESTHESIA [None]
  - SLEEP DISORDER [None]
